FAERS Safety Report 24057520 (Version 1)
Quarter: 2024Q3

REPORT INFORMATION
  Report Type: Spontaneous
  Country: DE (occurrence: DE)
  Receive Date: 20240706
  Receipt Date: 20240706
  Transmission Date: 20241017
  Serious: Yes (Congenital Anomaly)
  Sender: ACCORD
  Company Number: None

PATIENT
  Sex: Male
  Weight: 2.59 kg

DRUGS (4)
  1. QUETIAPINE FUMARATE [Suspect]
     Active Substance: QUETIAPINE FUMARATE
     Indication: Sleep disorder
     Dosage: 25 (MG/D) / INTAKE QUESTIONABLE, 1 TRIMESTER
  2. BISOPROLOL FUMARATE [Suspect]
     Active Substance: BISOPROLOL FUMARATE
     Indication: Tachycardia
     Dosage: 5 (MG/D), 1 TRIMESTER
     Dates: start: 20230301, end: 20231115
  3. TRIMIPRAMINE [Suspect]
     Active Substance: TRIMIPRAMINE
     Indication: Sleep disorder
     Dosage: 75 (MG/D) / 75 MG AT ONSET OF PFREGNANCY, SSW 7.1:  REDUCED TO 25 MG/D, 1 TRIMESTER
  4. LEVOTHYROXINE SODIUM [Concomitant]
     Active Substance: LEVOTHYROXINE SODIUM
     Indication: Autoimmune thyroiditis
     Dosage: 125 MICROG/D / 100-125 MICROG/D ACCORDING TO TSH-VALUES
     Dates: start: 20230301, end: 20231115

REACTIONS (2)
  - Foetal exposure during pregnancy [Unknown]
  - Hypospadias [Unknown]

NARRATIVE: CASE EVENT DATE: 20231101
